FAERS Safety Report 24140687 (Version 1)
Quarter: 2024Q3

REPORT INFORMATION
  Report Type: Spontaneous
  Country: US (occurrence: US)
  Receive Date: 20240726
  Receipt Date: 20240726
  Transmission Date: 20241017
  Serious: No
  Sender: ELI LILLY AND CO
  Company Number: US-ELI_LILLY_AND_COMPANY-US202407016766

PATIENT

DRUGS (4)
  1. ZEPBOUND [Suspect]
     Active Substance: TIRZEPATIDE
     Indication: Obesity
     Dosage: 7.5 MG, UNKNOWN
     Route: 065
  2. ZEPBOUND [Suspect]
     Active Substance: TIRZEPATIDE
     Indication: Obesity
     Dosage: 7.5 MG, UNKNOWN
     Route: 065
  3. ZEPBOUND [Suspect]
     Active Substance: TIRZEPATIDE
     Indication: Obesity
     Dosage: 7.5 MG, UNKNOWN
     Route: 065
  4. ZEPBOUND [Suspect]
     Active Substance: TIRZEPATIDE
     Indication: Obesity
     Dosage: 7.5 MG, UNKNOWN
     Route: 065

REACTIONS (3)
  - Vomiting [Recovered/Resolved]
  - Diarrhoea [Recovered/Resolved]
  - Gastrooesophageal reflux disease [Recovered/Resolved]
